FAERS Safety Report 5061944-3 (Version None)
Quarter: 2006Q3

REPORT INFORMATION
  Report Type: 
  Country: None (occurrence: None)
  Receive Date: 20060726
  Receipt Date: 20060502
  Transmission Date: 20061208
  Serious: Yes (Death)
  Sender: FDA-Public Use
  Company Number: US-BRISTOL-MYERS SQUIBB COMPANY-13365119

PATIENT
  Age: 60 Year
  Sex: Female

DRUGS (6)
  1. CYTOXAN [Suspect]
     Indication: DIFFUSE LARGE B-CELL LYMPHOMA
     Route: 042
     Dates: start: 20050801, end: 20060222
  2. KYTRIL [Concomitant]
     Indication: PREMEDICATION
     Dates: start: 20050913, end: 20060223
  3. DECADRON [Concomitant]
     Indication: PREMEDICATION
     Dates: start: 20050913, end: 20060223
  4. ADRIAMYCIN PFS [Concomitant]
     Dates: start: 20050913, end: 20060223
  5. VINCRISTINE [Concomitant]
     Dates: start: 20050913, end: 20060223
  6. RITUXAN [Concomitant]
     Dates: start: 20050912, end: 20060222

REACTIONS (1)
  - MALIGNANT NEOPLASM PROGRESSION [None]
